FAERS Safety Report 8166815-1 (Version None)
Quarter: 2012Q1

REPORT INFORMATION
  Report Type: 
  Country: None (occurrence: None)
  Receive Date: 20120227
  Receipt Date: 20120209
  Transmission Date: 20120608
  Serious: Yes (Hospitalization)
  Sender: FDA-Public Use
  Company Number: US-ROCHE-1041337

PATIENT
  Age: 19 Year
  Sex: Male

DRUGS (1)
  1. ALTEPLASE [Suspect]
     Indication: CEREBRAL INFARCTION

REACTIONS (6)
  - PROCEDURAL HAEMORRHAGE [None]
  - CEREBRAL INFARCTION [None]
  - HAEMORRHAGIC CEREBRAL INFARCTION [None]
  - MEDIASTINAL HAEMATOMA [None]
  - TRACHEAL DEVIATION [None]
  - TRACHEAL OBSTRUCTION [None]
